FAERS Safety Report 9832559 (Version 1)
Quarter: 2014Q1

REPORT INFORMATION
  Report Type: Spontaneous
  Country: US (occurrence: US)
  Receive Date: 20140121
  Receipt Date: 20140121
  Transmission Date: 20141002
  Serious: Yes (Other)
  Sender: FDA-Public Use
  Company Number: US-RB-062333-14

PATIENT
  Age: 47 Year
  Sex: Male

DRUGS (2)
  1. MUCINEX MAXIMUM STRENGTH [Suspect]
     Indication: SINUS DISORDER
     Dosage: PATIENT TOOK LAST AT 10:00 P.M. ON 09-JAN-2014.
     Route: 048
     Dates: start: 20140108
  2. MUCINEX MAXIMUM STRENGTH [Suspect]
     Indication: INFLUENZA
     Dosage: PATIENT TOOK LAST AT 10:00 P.M. ON 09-JAN-2014.
     Route: 048
     Dates: start: 20140108

REACTIONS (4)
  - Restlessness [Recovered/Resolved]
  - Insomnia [Recovered/Resolved]
  - Off label use [Recovered/Resolved]
  - Drug ineffective for unapproved indication [Not Recovered/Not Resolved]
